FAERS Safety Report 4445779-8 (Version None)
Quarter: 2004Q3

REPORT INFORMATION
  Report Type: 
  Country: None (occurrence: None)
  Receive Date: 20040910
  Receipt Date: 20040426
  Transmission Date: 20050211
  Serious: Yes (Hospitalization)
  Sender: FDA-Public Use
  Company Number: 200411598JP

PATIENT
  Age: 24 Year
  Sex: Male
  Weight: 52.5 kg

DRUGS (4)
  1. LANTUS [Suspect]
     Indication: DIABETES MELLITUS
     Dosage: DOSE: 7-8 IU/DAY
     Route: 058
     Dates: start: 20040412
  2. OPTIPEN (INSULIN PUMP) [Suspect]
  3. PENFIL [Concomitant]
     Indication: DIABETES MELLITUS
     Route: 058
     Dates: end: 20040412
  4. HUMALOG [Concomitant]
     Indication: DIABETES MELLITUS
     Dosage: DOSE: 5-8IU/DAY
     Route: 058
     Dates: start: 20040413

REACTIONS (9)
  - ALANINE AMINOTRANSFERASE INCREASED [None]
  - ASPARTATE AMINOTRANSFERASE INCREASED [None]
  - BLOOD IMMUNOGLOBULIN E INCREASED [None]
  - BLOOD LACTATE DEHYDROGENASE INCREASED [None]
  - DIARRHOEA [None]
  - HEPATIC FUNCTION ABNORMAL [None]
  - NASOPHARYNGITIS [None]
  - VIRAL INFECTION [None]
  - WHITE BLOOD CELL COUNT DECREASED [None]
